FAERS Safety Report 6815754-4 (Version None)
Quarter: 2010Q3

REPORT INFORMATION
  Report Type: 
  Country: None (occurrence: None)
  Receive Date: 20100703
  Receipt Date: 20100330
  Transmission Date: 20110219
  Serious: Yes (Other)
  Sender: FDA-Public Use
  Company Number: US-ASTRAZENECA-2006UW09116

PATIENT
  Age: 55 Year
  Sex: Female

DRUGS (16)
  1. SEROQUEL [Suspect]
     Indication: ANXIETY
     Route: 048
     Dates: start: 20020101, end: 20060101
  2. SEROQUEL [Suspect]
     Indication: DEPRESSION
     Route: 048
     Dates: start: 20020101, end: 20060101
  3. SEROQUEL [Suspect]
     Indication: BIPOLAR DISORDER
     Route: 048
     Dates: start: 20020101, end: 20060101
  4. SEROQUEL [Suspect]
     Dosage: 100 MG, 2 AT NIGHT
     Route: 048
     Dates: start: 20031026
  5. SEROQUEL [Suspect]
     Dosage: 100 MG, 2 AT NIGHT
     Route: 048
     Dates: start: 20031026
  6. SEROQUEL [Suspect]
     Dosage: 100 MG, 2 AT NIGHT
     Route: 048
     Dates: start: 20031026
  7. ZYPREXA [Suspect]
     Indication: ANXIETY
     Dates: start: 20021001, end: 20021101
  8. ZYPREXA [Suspect]
     Indication: DEPRESSION
     Dates: start: 20021001, end: 20021101
  9. ZYPREXA [Suspect]
     Indication: BIPOLAR DISORDER
     Dates: start: 20021001, end: 20021101
  10. RISPERDAL [Suspect]
     Indication: ANXIETY
     Dates: start: 20000101, end: 20060101
  11. RISPERDAL [Suspect]
     Indication: DEPRESSION
     Dates: start: 20000101, end: 20060101
  12. RISPERDAL [Suspect]
     Indication: BIPOLAR DISORDER
     Dates: start: 20000101, end: 20060101
  13. ESKALITH [Concomitant]
     Dosage: 300 MG IN DAY AND AT NIGHT
     Dates: start: 20031026
  14. DOXEPIN HCL [Concomitant]
     Route: 048
     Dates: start: 20031026
  15. CLONAZEPAM [Concomitant]
     Dosage: THREE TIMES A DAY
     Route: 048
     Dates: start: 20031026
  16. AMBIEN [Concomitant]
     Route: 048
     Dates: start: 20031026

REACTIONS (3)
  - DIABETES MELLITUS [None]
  - DIABETES MELLITUS INADEQUATE CONTROL [None]
  - DIABETIC NEUROPATHY [None]
